FAERS Safety Report 19092247 (Version 1)
Quarter: 2021Q2

REPORT INFORMATION
  Report Type: Spontaneous
  Country: HU (occurrence: HU)
  Receive Date: 20210405
  Receipt Date: 20210405
  Transmission Date: 20210717
  Serious: Yes (Other)
  Sender: FDA-Public Use
  Company Number: NVSC2021HU071249

PATIENT
  Age: 50 Year
  Sex: Male

DRUGS (7)
  1. LITALIR [Concomitant]
     Active Substance: HYDROXYUREA
     Dosage: 6 DF (CAPSULES)
     Route: 065
     Dates: start: 200209
  2. GLIVEC [Suspect]
     Active Substance: IMATINIB MESYLATE
     Indication: PRODUCT USED FOR UNKNOWN INDICATION
     Dosage: 400 MG, QD
     Route: 065
     Dates: start: 200301, end: 200501
  3. GLIVEC [Suspect]
     Active Substance: IMATINIB MESYLATE
     Dosage: 800 UNK
     Route: 065
     Dates: start: 200601
  4. DALACIN [Concomitant]
     Active Substance: CLINDAMYCIN
     Indication: PRODUCT USED FOR UNKNOWN INDICATION
     Dosage: UNK
     Route: 065
     Dates: start: 2005
  5. LITALIR [Concomitant]
     Active Substance: HYDROXYUREA
     Indication: PRODUCT USED FOR UNKNOWN INDICATION
     Dosage: 4 DF ( CAPSULE)
     Route: 065
     Dates: start: 2002, end: 2002
  6. LITALIR [Concomitant]
     Active Substance: HYDROXYUREA
     Dosage: 3 DF, QD
     Route: 065
     Dates: start: 20020610
  7. GLIVEC [Suspect]
     Active Substance: IMATINIB MESYLATE
     Dosage: 400 MG, BID
     Route: 065
     Dates: start: 200501

REACTIONS (5)
  - Gene mutation [Unknown]
  - Condition aggravated [Unknown]
  - White blood cell count increased [Unknown]
  - Cytogenetic analysis abnormal [Recovered/Resolved]
  - Drug resistance [Unknown]

NARRATIVE: CASE EVENT DATE: 20031202
